FAERS Safety Report 4652503-2 (Version None)
Quarter: 2005Q2

REPORT INFORMATION
  Report Type: 
  Country: None (occurrence: None)
  Receive Date: 20050502
  Receipt Date: 20050419
  Transmission Date: 20051028
  Serious: Yes (Life-Threatening, Other)
  Sender: FDA-Public Use
  Company Number: ATO-05-0126

PATIENT
  Age: 31 Year
  Sex: Female
  Weight: 71 kg

DRUGS (17)
  1. TRISENOX [Suspect]
     Indication: ACUTE PROMYELOCYTIC LEUKAEMIA
     Dosage: 0.15 MG/KG (0.15, QD X 5DAYS), IVI
     Route: 042
     Dates: start: 20050402, end: 20050406
  2. PIPERACILLIN SODIUM [Concomitant]
  3. COMBACTAM [Concomitant]
  4. FUROSEMIDE [Concomitant]
  5. POTASSIUM CHLORIDE [Concomitant]
  6. DEXAMETHASONE [Concomitant]
  7. ESOMEPRAZOLE [Concomitant]
  8. COTRIM DS [Concomitant]
  9. NYSTATIN [Concomitant]
  10. TRAMADOL HCL [Concomitant]
  11. MORPHINE [Concomitant]
  12. DIAZEPAM [Concomitant]
  13. CALCIUM GLUCONATE [Concomitant]
  14. MAGNESIUM [Concomitant]
  15. VITAMIN K [Concomitant]
  16. LYNESTRENOL [Concomitant]
  17. ALLOPURINOL [Concomitant]

REACTIONS (5)
  - BLOOD FIBRINOGEN DECREASED [None]
  - PLATELET COUNT ABNORMAL [None]
  - PROTHROMBIN TIME PROLONGED [None]
  - SUBDURAL HAEMATOMA [None]
  - WHITE BLOOD CELL DISORDER [None]
